FAERS Safety Report 5700667-1 (Version None)
Quarter: 2008Q2

REPORT INFORMATION
  Report Type: 
  Country: None (occurrence: None)
  Receive Date: 20080410
  Receipt Date: 20080408
  Transmission Date: 20081010
  Serious: Yes (Other)
  Sender: FDA-Public Use
  Company Number: US-MERCK-0710USA00056

PATIENT
  Age: 85 Year
  Sex: Male

DRUGS (7)
  1. JANUVIA [Suspect]
     Indication: BLOOD GLUCOSE
     Route: 048
     Dates: start: 20070101, end: 20070101
  2. ASPIRIN [Concomitant]
     Route: 065
  3. NORVASC [Concomitant]
     Route: 065
  4. VYTORIN [Concomitant]
     Route: 048
  5. CARDIZEM [Concomitant]
     Route: 065
  6. GEMFIBROZIL [Concomitant]
     Route: 065
  7. COZAAR [Suspect]
     Route: 048

REACTIONS (1)
  - RHABDOMYOLYSIS [None]
